FAERS Safety Report 7987264-2 (Version None)
Quarter: 2011Q4

REPORT INFORMATION
  Report Type: 
  Country: None (occurrence: None)
  Receive Date: 20111216
  Receipt Date: 20110922
  Transmission Date: 20120403
  Serious: No
  Sender: FDA-Public Use
  Company Number: US-BRISTOL-MYERS SQUIBB COMPANY-15639784

PATIENT
  Age: 56 Year
  Sex: Female

DRUGS (2)
  1. ABILIFY [Suspect]
     Indication: MAJOR DEPRESSION
  2. ADDERALL 5 [Suspect]
     Indication: MAJOR DEPRESSION

REACTIONS (2)
  - TIC [None]
  - DYSKINESIA [None]
